FAERS Safety Report 18858010 (Version 2)
Quarter: 2021Q3

REPORT INFORMATION
  Report Type: Report from Study
  Country: None (occurrence: RU)
  Receive Date: 20210208
  Receipt Date: 20210902
  Transmission Date: 20211014
  Serious: Yes (Death, Hospitalization)
  Sender: FDA-Public Use
  Company Number: RU-ABBVIE-21K-251-3763077-00

PATIENT
  Age: 82 Year
  Sex: Male

DRUGS (1)
  1. VENCLEXTA [Suspect]
     Active Substance: VENETOCLAX
     Indication: CHRONIC LYMPHOCYTIC LEUKAEMIA
     Route: 048

REACTIONS (2)
  - COVID-19 pneumonia [Recovered/Resolved]
  - COVID-19 pneumonia [Fatal]

NARRATIVE: CASE EVENT DATE: 20200420
